FAERS Safety Report 12202013 (Version 3)
Quarter: 2018Q2

REPORT INFORMATION
  Report Type: Report from Study
  Country: US (occurrence: US)
  Receive Date: 20160322
  Receipt Date: 20180430
  Transmission Date: 20180711
  Serious: Yes (Hospitalization, Other)
  Sender: FDA-Public Use
  Company Number: PHEH2016US006666

PATIENT
  Sex: Female

DRUGS (2)
  1. GILENYA [Suspect]
     Active Substance: FINGOLIMOD HYDROCHLORIDE
     Dosage: 0.5 MG, QD
     Route: 048
     Dates: start: 20180416
  2. GILENYA [Suspect]
     Active Substance: FINGOLIMOD HYDROCHLORIDE
     Indication: MULTIPLE SCLEROSIS
     Dosage: 0.5 MG, QD
     Route: 048
     Dates: start: 2014, end: 20180216

REACTIONS (22)
  - Chest discomfort [Unknown]
  - Asthenia [Unknown]
  - Loss of consciousness [Recovering/Resolving]
  - Confusional state [Recovering/Resolving]
  - Uveitis [Unknown]
  - Diarrhoea [Not Recovered/Not Resolved]
  - Pulmonary oedema [Unknown]
  - Vision blurred [Unknown]
  - Blood pressure fluctuation [Not Recovered/Not Resolved]
  - Head injury [Recovering/Resolving]
  - Amaurosis fugax [Unknown]
  - Fatigue [Unknown]
  - Fall [Recovering/Resolving]
  - Bradycardia [Not Recovered/Not Resolved]
  - Cough [Unknown]
  - Pyrexia [Unknown]
  - Somnolence [Unknown]
  - Headache [Not Recovered/Not Resolved]
  - Urinary tract infection [Recovered/Resolved]
  - Bronchitis [Unknown]
  - Concussion [Recovering/Resolving]
  - Photopsia [Unknown]
